FAERS Safety Report 6461464 (Version 3)
Quarter: 2018Q4

REPORT INFORMATION
  Report Type: Spontaneous
  Country: IT (occurrence: IT)
  Receive Date: 20071108
  Receipt Date: 20181205
  Transmission Date: 20190205
  Serious: Yes (Hospitalization)
  Sender: FDA-Public Use
  Company Number: IT-AVENTIS-200715161EU

PATIENT
  Age: 79 Year
  Sex: Male

DRUGS (4)
  1. LASIX [Suspect]
     Active Substance: FUROSEMIDE
     Indication: NEPHROTIC SYNDROME
     Dosage: 250 MG, QD
     Route: 048
     Dates: start: 20070301, end: 20070410
  2. SARTAN [Concomitant]
     Active Substance: LOSARTAN POTASSIUM
     Dosage: DOSE AS USED: UNK
  3. ACE INHIBITORS [Concomitant]
     Active Substance: UNSPECIFIED INGREDIENT
     Dosage: DOSE AS USED: UNK
  4. CHLOROQUINE PHOSPHATE. [Suspect]
     Active Substance: CHLOROQUINE PHOSPHATE
     Dosage: 400 MG, QD
     Route: 048
     Dates: start: 20070401, end: 20070402

REACTIONS (2)
  - Acute kidney injury [Recovered/Resolved]
  - Eczema [Recovered/Resolved]

NARRATIVE: CASE EVENT DATE: 20070404
